FAERS Safety Report 6430605-8 (Version None)
Quarter: 2009Q4

REPORT INFORMATION
  Report Type: 
  Country: None (occurrence: None)
  Receive Date: 20091106
  Receipt Date: 20091102
  Transmission Date: 20100525
  Serious: Yes (Hospitalization)
  Sender: FDA-Public Use
  Company Number: A0815113A

PATIENT
  Age: 70 Year
  Sex: Female
  Weight: 58.2 kg

DRUGS (1)
  1. AVANDIA [Suspect]
     Dosage: 4MG TWICE PER DAY
     Route: 048
     Dates: start: 20051001, end: 20070201

REACTIONS (2)
  - CARDIAC DISORDER [None]
  - THROMBOSIS [None]
